APPROVED DRUG PRODUCT: HYDROCODONE BITARTRATE AND ACETAMINOPHEN
Active Ingredient: ACETAMINOPHEN; HYDROCODONE BITARTRATE
Strength: 500MG;10MG
Dosage Form/Route: TABLET;ORAL
Application: A040201 | Product #002
Applicant: MALLINCKRODT CHEMICAL INC
Approved: Feb 27, 1998 | RLD: No | RS: No | Type: DISCN